FAERS Safety Report 5351191-X (Version None)
Quarter: 2007Q2

REPORT INFORMATION
  Report Type: 
  Country: None (occurrence: None)
  Receive Date: 20070608
  Receipt Date: 20070528
  Transmission Date: 20071010
  Serious: Yes (Other)
  Sender: FDA-Public Use
  Company Number: DK-PFIZER INC-2007042106

PATIENT
  Age: 42 Year
  Sex: Male

DRUGS (3)
  1. CAVERJECT [Suspect]
     Indication: ERECTILE DYSFUNCTION
  2. ACTRAPID [Concomitant]
     Route: 058
  3. INSULATARD [Concomitant]
     Route: 058

REACTIONS (4)
  - HYPERTENSION [None]
  - PENILE PAIN [None]
  - PENIS DISORDER [None]
  - SURGERY [None]
